FAERS Safety Report 23854910 (Version 1)
Quarter: 2024Q2

REPORT INFORMATION
  Report Type: Spontaneous
  Country: US (occurrence: US)
  Receive Date: 20240514
  Receipt Date: 20240514
  Transmission Date: 20240715
  Serious: No
  Sender: FDA-Public Use
  Company Number: US-ANIPHARMA-2024-US-020247

PATIENT
  Age: 70 Year
  Sex: Female

DRUGS (14)
  1. CORTICOTROPIN [Suspect]
     Active Substance: CORTICOTROPIN
     Indication: Pulmonary sarcoidosis
     Dosage: 40 UNITS TWICE WEEKLY
     Route: 058
  2. ZYRTEC [Concomitant]
     Active Substance: CETIRIZINE HYDROCHLORIDE
  3. ELAVIL [Concomitant]
     Active Substance: AMITRIPTYLINE HYDROCHLORIDE
  4. ESTRADERM [Concomitant]
     Active Substance: ESTRADIOL
  5. PROVERA [Concomitant]
     Active Substance: MEDROXYPROGESTERONE ACETATE
  6. FISH OIL [Concomitant]
     Active Substance: FISH OIL
  7. PREDNISONE [Concomitant]
     Active Substance: PREDNISONE
  8. FLONASE [Concomitant]
     Active Substance: FLUTICASONE PROPIONATE
  9. NEXIUM [Concomitant]
     Active Substance: ESOMEPRAZOLE MAGNESIUM
  10. TRAMADOL [Concomitant]
     Active Substance: TRAMADOL\TRAMADOL HYDROCHLORIDE
  11. MAXIDEX [Concomitant]
     Active Substance: DEXAMETHASONE
  12. LIPITOR [Concomitant]
     Active Substance: ATORVASTATIN CALCIUM
  13. METOPROLOL [Concomitant]
     Active Substance: METOPROLOL
  14. IRON [Concomitant]
     Active Substance: IRON

REACTIONS (2)
  - Foot operation [Unknown]
  - Eye symptom [Not Recovered/Not Resolved]
